FAERS Safety Report 8367216-3 (Version None)
Quarter: 2012Q2

REPORT INFORMATION
  Report Type: 
  Country: None (occurrence: None)
  Receive Date: 20120517
  Receipt Date: 20120510
  Transmission Date: 20120825
  Serious: Yes (Hospitalization, Other)
  Sender: FDA-Public Use
  Company Number: PHHY2012TW040019

PATIENT
  Age: 3 Year
  Sex: Male

DRUGS (2)
  1. IBUPROFEN [Suspect]
  2. ERYTHROMYCIN [Suspect]

REACTIONS (8)
  - ERYTHEMA [None]
  - SKIN FISSURES [None]
  - TENDERNESS [None]
  - SCAB [None]
  - RASH PUSTULAR [None]
  - SKIN EXFOLIATION [None]
  - ACUTE GENERALISED EXANTHEMATOUS PUSTULOSIS [None]
  - STAPHYLOCOCCAL SCALDED SKIN SYNDROME [None]
